FAERS Safety Report 4326558-9 (Version None)
Quarter: 2004Q1

REPORT INFORMATION
  Report Type: 
  Country: None (occurrence: None)
  Receive Date: 20040325
  Receipt Date: 20031113
  Transmission Date: 20041129
  Serious: Yes (Hospitalization)
  Sender: FDA-Public Use
  Company Number: US052197

PATIENT
  Age: 57 Year
  Sex: Female
  Weight: 77.6 kg

DRUGS (1)
  1. NEULASTA [Suspect]
     Indication: CHEMOTHERAPY
     Dosage: 6 MG, AFTER CHEMO. SC
     Route: 058

REACTIONS (2)
  - ARTHRALGIA [None]
  - FULL BLOOD COUNT INCREASED [None]
